FAERS Safety Report 23423985 (Version 1)
Quarter: 2024Q1

REPORT INFORMATION
  Report Type: Report from Study
  Country: CO (occurrence: CO)
  Receive Date: 20240120
  Receipt Date: 20240120
  Transmission Date: 20240410
  Serious: Yes (Hospitalization, Other)
  Sender: FDA-Public Use
  Company Number: CO-ABBVIE-5596110

PATIENT
  Sex: Male
  Weight: 78 kg

DRUGS (1)
  1. SKYRIZI [Suspect]
     Active Substance: RISANKIZUMAB-RZAA
     Indication: Psoriasis
     Dosage: FORM STRENGTH WAS 150 MILLIGRAM.
     Route: 058
     Dates: start: 20230323, end: 20231018

REACTIONS (3)
  - Road traffic accident [Recovering/Resolving]
  - Wrist fracture [Recovering/Resolving]
  - Pain in extremity [Recovering/Resolving]

NARRATIVE: CASE EVENT DATE: 20230101
